FAERS Safety Report 5906884-X (Version None)
Quarter: 2008Q4

REPORT INFORMATION
  Report Type: 
  Country: None (occurrence: None)
  Receive Date: 20081003
  Receipt Date: 20080925
  Transmission Date: 20090506
  Serious: Yes (Other)
  Sender: FDA-Public Use
  Company Number: GB-RANBAXY-2007RR-07344

PATIENT
  Sex: Female

DRUGS (4)
  1. ISOTRETINOIN [Suspect]
     Indication: ACNE
     Dosage: 400 MG, UNK
     Route: 048
     Dates: start: 20080422, end: 20080715
  2. NORGESTIMATE AND ETHINYL ESTRADIOL [Concomitant]
     Indication: ORAL CONTRACEPTION
     Route: 048
  3. LYMECYCLINE [Concomitant]
     Dosage: UNK
     Route: 065
     Dates: start: 20080124, end: 20080422
  4. RETIN-A [Concomitant]
     Dosage: UNK
     Route: 065
     Dates: start: 20080124, end: 20080422

REACTIONS (1)
  - PREGNANCY [None]
